FAERS Safety Report 6044905-7 (Version None)
Quarter: 2009Q1

REPORT INFORMATION
  Report Type: 
  Country: None (occurrence: None)
  Receive Date: 20090121
  Receipt Date: 20090109
  Transmission Date: 20090719
  Serious: Yes (Hospitalization)
  Sender: FDA-Public Use
  Company Number: ES-PFIZER INC-2008155616

PATIENT

DRUGS (4)
  1. EPLERENONE [Suspect]
     Indication: HEPATIC CIRRHOSIS
     Route: 048
  2. FUROSEMIDE [Interacting]
     Indication: HEPATIC CIRRHOSIS
     Route: 048
  3. CORONUR [Concomitant]
     Indication: HEPATIC CIRRHOSIS
     Dosage: 40 MG, 1X/DAY
     Route: 048
  4. SUMIAL - SLOW RELEASE [Concomitant]
     Indication: HEPATIC CIRRHOSIS
     Dosage: 160 MG, 1X/DAY
     Route: 048

REACTIONS (2)
  - DRUG INTERACTION [None]
  - HEPATIC ENCEPHALOPATHY [None]
